FAERS Safety Report 7013070-1 (Version None)
Quarter: 2010Q3

REPORT INFORMATION
  Report Type: 
  Country: None (occurrence: None)
  Receive Date: 20100924
  Receipt Date: 20100914
  Transmission Date: 20110219
  Serious: Yes (Hospitalization, Other)
  Sender: FDA-Public Use
  Company Number: GR-PFIZER INC-2010115934

PATIENT
  Age: 48 Year
  Sex: Female
  Weight: 66 kg

DRUGS (3)
  1. EPIRUBICIN HYDROCHLORIDE [Suspect]
     Indication: BREAST CANCER
     Dosage: 110 MG/M2, CYCLIC, EVERY 14 DAYS
     Route: 042
     Dates: start: 20070121, end: 20070121
  2. GRANISETRON [Concomitant]
     Indication: PROPHYLAXIS OF NAUSEA AND VOMITING
     Dosage: 1 MG, SINGLE
     Route: 042
     Dates: start: 20070121, end: 20070121
  3. DEXAMETHASONE [Concomitant]
     Indication: PROPHYLAXIS
     Dosage: 8 MG, SINGLE
     Route: 042
     Dates: start: 20070121, end: 20070121

REACTIONS (1)
  - FEBRILE NEUTROPENIA [None]
